FAERS Safety Report 10400840 (Version 1)
Quarter: 2014Q3

REPORT INFORMATION
  Report Type: Spontaneous
  Country: US (occurrence: US)
  Receive Date: 20140821
  Receipt Date: 20140821
  Transmission Date: 20150326
  Serious: No
  Sender: FDA-Public Use
  Company Number: US-ASTRAZENECA-2014SE20107

PATIENT
  Age: 79 Year
  Sex: Male
  Weight: 70.3 kg

DRUGS (2)
  1. SYMBICORT [Suspect]
     Active Substance: BUDESONIDE\FORMOTEROL FUMARATE DIHYDRATE
     Indication: ASTHMA
     Dosage: 80/4.5 UG, 2 PUFFS BID
     Route: 055
     Dates: start: 201401
  2. CLARATIN [Concomitant]
     Indication: HYPERSENSITIVITY
     Dosage: UNKNOWN DAILY

REACTIONS (3)
  - Dysphonia [Not Recovered/Not Resolved]
  - Dry throat [Not Recovered/Not Resolved]
  - Mucosal dryness [Not Recovered/Not Resolved]
